FAERS Safety Report 15005365 (Version 1)
Quarter: 2018Q2

REPORT INFORMATION
  Report Type: Spontaneous
  Country: CH (occurrence: CH)
  Receive Date: 20180613
  Receipt Date: 20180613
  Transmission Date: 20180711
  Serious: Yes (Other)
  Sender: FDA-Public Use
  Company Number: CH-LPDUSPRD-20181027

PATIENT
  Age: 49 Year
  Sex: Female
  Weight: 62 kg

DRUGS (1)
  1. FERINJECT [Suspect]
     Active Substance: FERRIC CARBOXYMALTOSE
     Dosage: 300 MG
     Route: 040
     Dates: start: 20180419, end: 20180419

REACTIONS (3)
  - Product use in unapproved indication [Unknown]
  - Rash pruritic [Recovered/Resolved]
  - Petechiae [Unknown]

NARRATIVE: CASE EVENT DATE: 20180419
